FAERS Safety Report 7389795-5 (Version None)
Quarter: 2011Q1

REPORT INFORMATION
  Report Type: 
  Country: None (occurrence: None)
  Receive Date: 20110323
  Receipt Date: 20110316
  Transmission Date: 20110831
  Serious: Yes (Hospitalization, Other)
  Sender: FDA-Public Use
  Company Number: FABR-1000583

PATIENT
  Age: 38 Year
  Sex: Female
  Weight: 65 kg

DRUGS (3)
  1. FABRAZYME [Suspect]
     Indication: FABRY'S DISEASE
     Dosage: 35 MG, Q3W, INTRAVENOUS ; 65 MG, Q2W, INTRAVENOUS ; 35 MG, Q3W, INTRAVENOUS
     Route: 042
     Dates: start: 20070323, end: 20091017
  2. FABRAZYME [Suspect]
     Indication: FABRY'S DISEASE
     Dosage: 35 MG, Q3W, INTRAVENOUS ; 65 MG, Q2W, INTRAVENOUS ; 35 MG, Q3W, INTRAVENOUS
     Route: 042
     Dates: start: 20091017, end: 20100214
  3. FABRAZYME [Suspect]
     Indication: FABRY'S DISEASE
     Dosage: 35 MG, Q3W, INTRAVENOUS ; 65 MG, Q2W, INTRAVENOUS ; 35 MG, Q3W, INTRAVENOUS
     Route: 042
     Dates: start: 20100214

REACTIONS (4)
  - HAEMODIALYSIS [None]
  - RENAL FAILURE CHRONIC [None]
  - SEPSIS [None]
  - TRANSPLANT FAILURE [None]
